FAERS Safety Report 8436366-5 (Version None)
Quarter: 2012Q2

REPORT INFORMATION
  Report Type: 
  Country: None (occurrence: None)
  Receive Date: 20120614
  Receipt Date: 20110415
  Transmission Date: 20120825
  Serious: No
  Sender: FDA-Public Use
  Company Number: US-NOVEN-11US002298

PATIENT
  Age: 9 Year
  Sex: Male

DRUGS (1)
  1. DAYTRANA [Suspect]
     Indication: ATTENTION DEFICIT/HYPERACTIVITY DISORDER
     Dosage: UNK
     Route: 062

REACTIONS (11)
  - EMOTIONAL DISTRESS [None]
  - DISTURBANCE IN ATTENTION [None]
  - EDUCATIONAL PROBLEM [None]
  - LOGORRHOEA [None]
  - ANXIETY [None]
  - COMPULSIONS [None]
  - AGITATION [None]
  - INSOMNIA [None]
  - DISTURBANCE IN SOCIAL BEHAVIOUR [None]
  - DECREASED APPETITE [None]
  - DRUG DOSE OMISSION [None]
